FAERS Safety Report 17681288 (Version 2)
Quarter: 2021Q4

REPORT INFORMATION
  Report Type: Spontaneous
  Country: HR (occurrence: HR)
  Receive Date: 20200417
  Receipt Date: 20211004
  Transmission Date: 20220303
  Serious: Yes (Other)
  Sender: FDA-Public Use
  Company Number: HR-002147023-NVSC2020HR080046

PATIENT
  Age: 69 Year
  Sex: Male

DRUGS (2)
  1. ZOLEDRONIC ACID [Suspect]
     Active Substance: ZOLEDRONIC ACID
     Indication: Plasma cell myeloma
     Dosage: UNK
     Route: 042
  2. PAMIDRONATE [Suspect]
     Active Substance: PAMIDRONATE DISODIUM
     Indication: Plasma cell myeloma
     Dosage: UNK
     Route: 042

REACTIONS (3)
  - Exposed bone in jaw [Unknown]
  - Osteonecrosis of jaw [Unknown]
  - Product use in unapproved indication [Unknown]
